FAERS Safety Report 8250372-5 (Version None)
Quarter: 2012Q2

REPORT INFORMATION
  Report Type: 
  Country: None (occurrence: None)
  Receive Date: 20120402
  Receipt Date: 20120321
  Transmission Date: 20120825
  Serious: Yes (Other)
  Sender: FDA-Public Use
  Company Number: JP-ELI_LILLY_AND_COMPANY-JP201203006693

PATIENT
  Age: 64 Year
  Sex: Male
  Weight: 58 kg

DRUGS (2)
  1. CISPLATIN [Concomitant]
     Indication: PERITONEAL MESOTHELIOMA MALIGNANT
     Dosage: 100 MG/M2, UNK
     Route: 042
  2. ALIMTA [Suspect]
     Indication: PERITONEAL MESOTHELIOMA MALIGNANT
     Dosage: 700 MG/M2, UNK
     Route: 042
     Dates: start: 20080901

REACTIONS (7)
  - PNEUMONIA ASPIRATION [None]
  - ANAEMIA [None]
  - NEOPLASM PROGRESSION [None]
  - HICCUPS [None]
  - LIVER DISORDER [None]
  - C-REACTIVE PROTEIN INCREASED [None]
  - OFF LABEL USE [None]
